FAERS Safety Report 12989201 (Version 3)
Quarter: 2017Q1

REPORT INFORMATION
  Report Type: Spontaneous
  Country: US (occurrence: US)
  Receive Date: 20161201
  Receipt Date: 20170214
  Transmission Date: 20170428
  Serious: Yes (Life-Threatening, Hospitalization, Other)
  Sender: FDA-Public Use
  Company Number: US-009507513-1611USA011368

PATIENT
  Age: 71 Year
  Sex: Male

DRUGS (4)
  1. FUROSEMIDE. [Suspect]
     Active Substance: FUROSEMIDE
     Indication: CARDIAC FAILURE
  2. SODIUM CHLORIDE. [Concomitant]
     Active Substance: SODIUM CHLORIDE
     Indication: RENAL SALT-WASTING SYNDROME
     Dosage: ISOTONIC
  3. DEXTROSE. [Concomitant]
     Active Substance: DEXTROSE
     Indication: HYPONATRAEMIA
  4. FUROSEMIDE. [Suspect]
     Active Substance: FUROSEMIDE
     Indication: POLYURIA
     Route: 048

REACTIONS (2)
  - Polyuria [Unknown]
  - Hypotension [Unknown]
